FAERS Safety Report 8534856-8 (Version None)
Quarter: 2012Q3

REPORT INFORMATION
  Report Type: 
  Country: None (occurrence: None)
  Receive Date: 20120724
  Receipt Date: 20120120
  Transmission Date: 20120928
  Serious: Yes (Other)
  Sender: FDA-Public Use
  Company Number: CHPA2012US012675

PATIENT
  Sex: Female

DRUGS (1)
  1. EXCEDRIN EXTRA STRENGTH TABLETS [Suspect]
     Dosage: USUALLY TAKE A COUPLE A DAY
     Route: 048

REACTIONS (3)
  - MALAISE [None]
  - COLITIS MICROSCOPIC [None]
  - INFLAMMATORY BOWEL DISEASE [None]
